FAERS Safety Report 8774741 (Version 1)
Quarter: 2012Q4

REPORT INFORMATION
  Report Type: 
  Country: US (occurrence: US)
  Receive Date: 20120910
  Receipt Date: 20120910
  Transmission Date: 20130627
  Serious: Yes (Other)
  Sender: FDA-Public Use
  Company Number: US-VERTEX PHARMACEUTICAL INC.-AE-2012-006295

PATIENT

DRUGS (4)
  1. INCIVEK [Suspect]
     Indication: HEPATITIS C
     Dosage: 750 mg, UNK
     Route: 048
     Dates: start: 20120301, end: 20120820
  2. RIBASPHERE [Concomitant]
     Indication: HEPATITIS C
     Dosage: UNK
     Dates: start: 20120301, end: 20120820
  3. PEGASYS [Concomitant]
     Indication: HEPATITIS C
     Dosage: 180 UNK, UNK
     Dates: start: 20120301, end: 20120820
  4. CELEXA                             /00582602/ [Concomitant]

REACTIONS (1)
  - Convulsion [Recovered/Resolved]
